FAERS Safety Report 5896296-X (Version None)
Quarter: 2008Q3

REPORT INFORMATION
  Report Type: 
  Country: None (occurrence: None)
  Receive Date: 20080924
  Receipt Date: 20070829
  Transmission Date: 20090109
  Serious: Yes (Hospitalization)
  Sender: FDA-Public Use
  Company Number: US-ASTRAZENECA-2007UW19115

PATIENT
  Age: 72 Year
  Sex: Female

DRUGS (5)
  1. SEROQUEL [Suspect]
     Indication: ANXIETY
     Route: 048
     Dates: start: 20070803
  2. SEROQUEL [Suspect]
     Indication: INSOMNIA
     Route: 048
     Dates: start: 20070803
  3. ZOLOFT [Concomitant]
     Indication: ANXIETY
     Dosage: 150-200 MG QD
  4. HYDROCHLOROTHIAZIDE [Concomitant]
     Indication: HYPERTENSION
  5. BENICAR [Concomitant]
     Indication: HYPERTENSION

REACTIONS (1)
  - HYPONATRAEMIA [None]
